FAERS Safety Report 4386710-3 (Version None)
Quarter: 2004Q2

REPORT INFORMATION
  Report Type: 
  Country: None (occurrence: None)
  Receive Date: 20040607
  Receipt Date: 20030418
  Transmission Date: 20050107
  Serious: Yes (Death)
  Sender: FDA-Public Use
  Company Number: 327285

PATIENT
  Age: 38 Year
  Sex: Female
  Weight: 53.1 kg

DRUGS (1)
  1. ACCUTANE [Suspect]
     Indication: ACNE
     Dosage: 40 MG 1 PER 2 DAY ORAL
     Route: 048
     Dates: start: 20000519

REACTIONS (4)
  - COMPLETED SUICIDE [None]
  - DEPRESSION [None]
  - DRY SKIN [None]
  - SUICIDAL IDEATION [None]
